FAERS Safety Report 5554067-8 (Version None)
Quarter: 2007Q4

REPORT INFORMATION
  Report Type: 
  Country: None (occurrence: None)
  Receive Date: 20071212
  Receipt Date: 20071212
  Transmission Date: 20080405
  Serious: No
  Sender: FDA-Public Use
  Company Number: None

PATIENT
  Sex: Female
  Weight: 118.3888 kg

DRUGS (8)
  1. CITALOPRAM HYDROBROMIDE [Suspect]
     Indication: DEPRESSION
     Dosage: 20MG ONCE DAILY PO
     Route: 048
  2. CELEXA [Suspect]
  3. PROZAC [Concomitant]
  4. MOBIC [Concomitant]
  5. CLARINEX [Concomitant]
  6. HYDROCHLOROTHIAZIDE [Concomitant]
  7. DIOVAN [Concomitant]
  8. SKELAXIN [Concomitant]

REACTIONS (3)
  - DIZZINESS [None]
  - FEELING ABNORMAL [None]
  - PHARMACEUTICAL PRODUCT COMPLAINT [None]
